FAERS Safety Report 13176446 (Version 1)
Quarter: 2017Q1

REPORT INFORMATION
  Report Type: Spontaneous
  Country: MX (occurrence: MX)
  Receive Date: 20170201
  Receipt Date: 20170201
  Transmission Date: 20170428
  Serious: Yes (Hospitalization, Other)
  Sender: FDA-Public Use
  Company Number: MX-009507513-1701MEX013028

PATIENT
  Age: 64 Year
  Sex: Female

DRUGS (1)
  1. INVANZ [Suspect]
     Active Substance: ERTAPENEM SODIUM
     Indication: PARONYCHIA
     Dosage: 1 G, 24 HOURS PER 5 DAYS
     Dates: start: 20170118, end: 20170121

REACTIONS (7)
  - Somnolence [Recovering/Resolving]
  - Fatigue [Recovering/Resolving]
  - Hallucination [Recovered/Resolved]
  - Transfusion [Unknown]
  - Asthenia [Recovering/Resolving]
  - Headache [Recovering/Resolving]
  - Amnesia [Recovering/Resolving]

NARRATIVE: CASE EVENT DATE: 201701
